FAERS Safety Report 20850971 (Version 1)
Quarter: 2022Q2

REPORT INFORMATION
  Report Type: Spontaneous
  Country: US (occurrence: US)
  Receive Date: 20220519
  Receipt Date: 20220519
  Transmission Date: 20220720
  Serious: No
  Sender: FDA-Public Use
  Company Number: US-PFIZER INC-202200565716

PATIENT
  Age: 83 Year
  Sex: Male

DRUGS (1)
  1. DOFETILIDE [Suspect]
     Active Substance: DOFETILIDE
     Indication: Arrhythmia
     Dosage: UNK

REACTIONS (1)
  - Condition aggravated [Unknown]
